FAERS Safety Report 17285189 (Version 1)
Quarter: 2020Q1

REPORT INFORMATION
  Report Type: Spontaneous
  Country: FR (occurrence: FR)
  Receive Date: 20200117
  Receipt Date: 20200117
  Transmission Date: 20200409
  Serious: Yes (Disabling)
  Sender: FDA-Public Use
  Company Number: FR-MYLANLABS-2020M1004705

PATIENT
  Age: 92 Year
  Sex: Female
  Weight: 52 kg

DRUGS (1)
  1. FUROSEMIDE MYLAN 20 MG, COMPRIM? S?CABLE [Suspect]
     Active Substance: FUROSEMIDE
     Indication: HYPERTENSION
     Dosage: NON PR?CIS?E
     Route: 048
     Dates: start: 20180816, end: 20191017

REACTIONS (1)
  - Transient ischaemic attack [Recovering/Resolving]

NARRATIVE: CASE EVENT DATE: 20190808
